FAERS Safety Report 7244462-3 (Version None)
Quarter: 2011Q1

REPORT INFORMATION
  Report Type: 
  Country: None (occurrence: None)
  Receive Date: 20110125
  Receipt Date: 20110118
  Transmission Date: 20110831
  Serious: Yes (Other)
  Sender: FDA-Public Use
  Company Number: US-PFIZER INC-2011012725

PATIENT

DRUGS (2)
  1. EFFEXOR [Suspect]
     Indication: TRAUMATIC BRAIN INJURY
     Dosage: UNKNOWN
  2. STRATTERA [Suspect]
     Indication: TRAUMATIC BRAIN INJURY
     Dosage: UNKNOWN

REACTIONS (4)
  - IMPULSIVE BEHAVIOUR [None]
  - LIBIDO DECREASED [None]
  - FLAT AFFECT [None]
  - ANGER [None]
